FAERS Safety Report 23347334 (Version 1)
Quarter: 2023Q4

REPORT INFORMATION
  Report Type: Spontaneous
  Country: CN (occurrence: CN)
  Receive Date: 20231228
  Receipt Date: 20231228
  Transmission Date: 20240109
  Serious: Yes (Hospitalization, Other)
  Sender: FDA-Public Use
  Company Number: CN-009507513-2312CHN009937

PATIENT
  Age: 46 Year
  Sex: Male
  Weight: 57.5 kg

DRUGS (4)
  1. KEYTRUDA [Suspect]
     Active Substance: PEMBROLIZUMAB
     Indication: Neoplasm
     Dosage: 200 MG, EVERY 21 DAYS (Q3W), IV DRIP
     Route: 041
     Dates: start: 20231107, end: 20231129
  2. IPILIMUMAB [Suspect]
     Active Substance: IPILIMUMAB
     Indication: Neoplasm
     Dosage: 100 MG, EVERY 21 DAYS (Q3W), IV DRIP
     Route: 041
     Dates: start: 20231107, end: 20231129
  3. SODIUM CHLORIDE [Concomitant]
     Active Substance: SODIUM CHLORIDE
     Indication: Medication dilution
     Dosage: 50 ML, EVERY 21 DAYS (Q3W), IV DRIP
     Route: 041
     Dates: start: 20231107, end: 20231129
  4. SODIUM CHLORIDE [Concomitant]
     Active Substance: SODIUM CHLORIDE
     Dosage: 100 ML, EVERY 21 DAYS (Q3W), IV DRIP
     Route: 041
     Dates: start: 20231107, end: 20231129

REACTIONS (4)
  - Drug-induced liver injury [Recovering/Resolving]
  - Myocardial necrosis marker increased [Recovering/Resolving]
  - Hypothyroidism [Recovering/Resolving]
  - Inappropriate schedule of product administration [Unknown]

NARRATIVE: CASE EVENT DATE: 20231129
